FAERS Safety Report 8598255-5 (Version None)
Quarter: 2012Q3

REPORT INFORMATION
  Report Type: 
  Country: None (occurrence: None)
  Receive Date: 20120802
  Receipt Date: 20120723
  Transmission Date: 20120928
  Serious: Yes (Other)
  Sender: FDA-Public Use
  Company Number: AUR-APL-2012-03273

PATIENT
  Age: 70 Year
  Sex: Male

DRUGS (1)
  1. CLINDAMYCIN [Suspect]
     Indication: CELLULITIS

REACTIONS (5)
  - PYURIA [None]
  - FATIGUE [None]
  - EOSINOPHILIA [None]
  - TUBULOINTERSTITIAL NEPHRITIS [None]
  - MYALGIA [None]
